FAERS Safety Report 8551988 (Version 24)
Quarter: 2016Q4

REPORT INFORMATION
  Report Type: Report from Study
  Country: CA (occurrence: CA)
  Receive Date: 20120508
  Receipt Date: 20161101
  Transmission Date: 20170207
  Serious: Yes (Hospitalization, Other)
  Sender: FDA-Public Use
  Company Number: CA-ROCHE-1063036

PATIENT
  Age: 72 Year
  Sex: Female
  Weight: 61.7 kg

DRUGS (14)
  1. PREDNISONE. [Concomitant]
     Active Substance: PREDNISONE
  2. FLU SHOT [Interacting]
     Active Substance: INFLUENZA VIRUS VACCINE
     Indication: PRODUCT USED FOR UNKNOWN INDICATION
     Route: 065
     Dates: start: 20161014
  3. LEUCOVORIN. [Concomitant]
     Active Substance: LEUCOVORIN
  4. ACTEMRA [Interacting]
     Active Substance: TOCILIZUMAB
     Route: 042
     Dates: start: 20110125
  5. ACTEMRA [Interacting]
     Active Substance: TOCILIZUMAB
     Route: 042
     Dates: start: 20151007
  6. CELEBREX [Concomitant]
     Active Substance: CELECOXIB
  7. FOLINIC ACID [Concomitant]
     Active Substance: LEUCOVORIN
  8. METRONIDAZOLE. [Concomitant]
     Active Substance: METRONIDAZOLE
  9. VENLAFAXINE [Concomitant]
     Active Substance: VENLAFAXINE HYDROCHLORIDE
  10. LAMISIL [Concomitant]
     Active Substance: TERBINAFINE HYDROCHLORIDE
  11. ACTEMRA [Suspect]
     Active Substance: TOCILIZUMAB
     Indication: RHEUMATOID ARTHRITIS
     Route: 042
     Dates: start: 20101229
  12. ZOPICLONE [Concomitant]
     Active Substance: ZOPICLONE
     Indication: INSOMNIA
  13. CRESTOR [Concomitant]
     Active Substance: ROSUVASTATIN CALCIUM
  14. RISEDRONATE [Concomitant]
     Active Substance: RISEDRONATE SODIUM

REACTIONS (24)
  - Osteoarthritis [Unknown]
  - Dyspnoea [Unknown]
  - Oxygen saturation decreased [Unknown]
  - Blood pressure fluctuation [Unknown]
  - Rotator cuff syndrome [Unknown]
  - Therapy non-responder [Unknown]
  - Heart rate increased [Unknown]
  - Blood pressure systolic increased [Unknown]
  - Pulmonary mass [Not Recovered/Not Resolved]
  - Immunosuppression [Unknown]
  - Back pain [Recovered/Resolved]
  - Rheumatoid arthritis [Recovered/Resolved]
  - Pneumothorax [Unknown]
  - Malignant pleural effusion [Unknown]
  - Infusion related reaction [Unknown]
  - Sciatica [Recovering/Resolving]
  - Lung neoplasm malignant [Not Recovered/Not Resolved]
  - Cataract operation [Unknown]
  - Drug interaction [Unknown]
  - Weight increased [Unknown]
  - Osteoporosis [Not Recovered/Not Resolved]
  - Hypertonic bladder [Unknown]
  - Arthralgia [Not Recovered/Not Resolved]
  - Pain [Not Recovered/Not Resolved]

NARRATIVE: CASE EVENT DATE: 20120419
